FAERS Safety Report 14147311 (Version 4)
Quarter: 2017Q4

REPORT INFORMATION
  Report Type: Report from Study
  Country: None (occurrence: PE)
  Receive Date: 20171101
  Receipt Date: 20171218
  Transmission Date: 20180321
  Serious: Yes (Hospitalization)
  Sender: FDA-Public Use
  Company Number: PE-ABBVIE-17K-127-2148986-00

PATIENT
  Age: 14 Year
  Sex: Female
  Weight: 23 kg

DRUGS (2)
  1. METHOTREXATE. [Suspect]
     Active Substance: METHOTREXATE
     Indication: PRODUCT USED FOR UNKNOWN INDICATION
     Route: 065
  2. HUMIRA [Suspect]
     Active Substance: ADALIMUMAB
     Indication: JUVENILE IDIOPATHIC ARTHRITIS
     Route: 058
     Dates: start: 20160908

REACTIONS (3)
  - Epistaxis [Recovered/Resolved]
  - Thrombocytopenia [Not Recovered/Not Resolved]
  - Cardiac infection [Unknown]

NARRATIVE: CASE EVENT DATE: 2017
